FAERS Safety Report 7792371 (Version 3)
Quarter: 2013Q4

REPORT INFORMATION
  Report Type: Spontaneous
  Country: US (occurrence: GB)
  Receive Date: 20110131
  Receipt Date: 20131009
  Transmission Date: 20140711
  Serious: Yes (Hospitalization)
  Sender: FDA-Public Use
  Company Number: US-RANBAXY-2011US-41348

PATIENT
  Age: 45 Year
  Sex: Female

DRUGS (1)
  1. PARACETAMOL/ACETAMINOPHEN [Suspect]
     Indication: PRODUCT USED FOR UNKNOWN INDICATION
     Dosage: UNK
     Route: 048

REACTIONS (9)
  - Intentional overdose [Recovering/Resolving]
  - Coma [Recovering/Resolving]
  - Hypotension [Recovering/Resolving]
  - Ileus paralytic [Recovering/Resolving]
  - Pneumonia [Recovering/Resolving]
  - Metabolic acidosis [Recovering/Resolving]
  - Blood glucose abnormal [Recovering/Resolving]
  - Liver injury [Recovering/Resolving]
  - Normochromic normocytic anaemia [Recovering/Resolving]
